FAERS Safety Report 4384273-X (Version None)
Quarter: 2004Q2

REPORT INFORMATION
  Report Type: 
  Country: None (occurrence: None)
  Receive Date: 20040618
  Receipt Date: 20040607
  Transmission Date: 20050107
  Serious: Yes (Life-Threatening, Hospitalization)
  Sender: FDA-Public Use
  Company Number: 2004-BP-04138NB

PATIENT
  Age: 87 Year
  Sex: Male

DRUGS (5)
  1. MICARDIS [Suspect]
     Indication: HYPERTENSION
     Dosage: 40 MG (NR)
     Dates: start: 20030409, end: 20040514
  2. PARIET (RABEPRAZOLE SODIUM (TA) [Concomitant]
  3. LUPRAC (TORASEMIDE) (TA) [Concomitant]
  4. WARFARIN (WARFARIN) (TA) [Concomitant]
  5. PAXIL (PAROXETINE HYDROCHLORIDE) (TA) [Concomitant]

REACTIONS (4)
  - ANOREXIA [None]
  - DIALYSIS [None]
  - LOSS OF CONSCIOUSNESS [None]
  - RENAL FAILURE ACUTE [None]
